FAERS Safety Report 19202219 (Version 2)
Quarter: 2021Q2

REPORT INFORMATION
  Report Type: Spontaneous
  Country: TR (occurrence: TR)
  Receive Date: 20210430
  Receipt Date: 20210507
  Transmission Date: 20210717
  Serious: Yes (Life-Threatening, Other)
  Sender: FDA-Public Use
  Company Number: TR-PFIZER INC-2021471497

PATIENT
  Age: 6 Year

DRUGS (6)
  1. CLOBAZAM. [Interacting]
     Active Substance: CLOBAZAM
     Dosage: 0.5 MG/KG, DAILY
  2. SULTHIAME [Concomitant]
     Active Substance: SULTHIAME
     Indication: EPILEPTIC ENCEPHALOPATHY
     Dosage: 15 MG/KG, DAILY
  3. VIGABATRIN. [Concomitant]
     Active Substance: VIGABATRIN
     Indication: EPILEPTIC ENCEPHALOPATHY
     Dosage: 38 MG/KG, DAILY
  4. MEROPENEM. [Suspect]
     Active Substance: MEROPENEM
     Indication: PNEUMONIA
     Dosage: UNK
  5. CLOBAZAM. [Interacting]
     Active Substance: CLOBAZAM
     Indication: EPILEPTIC ENCEPHALOPATHY
     Dosage: 0.75 MG/KG, DAILY
  6. BACLOFEN. [Concomitant]
     Active Substance: BACLOFEN
     Indication: EPILEPTIC ENCEPHALOPATHY
     Dosage: 1.2 MG/KG, DAILY

REACTIONS (3)
  - Anticonvulsant drug level increased [Unknown]
  - Drug interaction [Recovering/Resolving]
  - Respiratory arrest [Recovering/Resolving]
